FAERS Safety Report 16378510 (Version 1)
Quarter: 2019Q2

REPORT INFORMATION
  Report Type: Spontaneous
  Country: US (occurrence: US)
  Receive Date: 20190426
  Receipt Date: 20190426
  Transmission Date: 20190711
  Serious: No
  Sender: FDA-Public Use
  Company Number: None

PATIENT

DRUGS (1)
  1. PACLITAXEL, ATHENEX 6MG/ML [Suspect]
     Active Substance: PACLITAXEL
     Route: 042

REACTIONS (3)
  - Product label issue [None]
  - Product use complaint [None]
  - Intercepted product selection error [None]

NARRATIVE: CASE EVENT DATE: 20190416
